FAERS Safety Report 5595032-4 (Version None)
Quarter: 2008Q1

REPORT INFORMATION
  Report Type: 
  Country: None (occurrence: None)
  Receive Date: 20080117
  Receipt Date: 20080107
  Transmission Date: 20080703
  Serious: Yes (Other)
  Sender: FDA-Public Use
  Company Number: FR-ASTRAZENECA-2007CG01192

PATIENT
  Age: 23278 Day
  Sex: Female
  Weight: 87 kg

DRUGS (9)
  1. ARIMIDEX [Suspect]
     Indication: BREAST CANCER FEMALE
     Route: 048
     Dates: start: 20050401, end: 20070601
  2. CRESTOR [Concomitant]
  3. SECTRAL [Concomitant]
  4. FLECAINIDE ACETATE [Concomitant]
  5. CORDARONE [Concomitant]
  6. ALLOPURINOL [Concomitant]
  7. LASIX [Concomitant]
  8. PREVISCAN [Concomitant]
  9. ACTOS [Concomitant]

REACTIONS (1)
  - POLYARTHRITIS [None]
